FAERS Safety Report 4956468-5 (Version None)
Quarter: 2006Q1

REPORT INFORMATION
  Report Type: 
  Country: None (occurrence: None)
  Receive Date: 20060328
  Receipt Date: 20060328
  Transmission Date: 20060701
  Serious: Yes (Life-Threatening, Hospitalization)
  Sender: FDA-Public Use
  Company Number: None

PATIENT
  Age: 39 Year
  Sex: Female
  Weight: 54.4316 kg

DRUGS (4)
  1. LEUKINE [Suspect]
     Indication: CHEMOTHERAPY
     Dosage: ?- GET DR. HERRERA. 850-444-4 1 SHOT PER DAY SQ
     Route: 058
     Dates: start: 20060225, end: 20060318
  2. LEUKINE [Suspect]
     Indication: WHITE BLOOD CELL COUNT DECREASED
     Dosage: ?- GET DR. HERRERA. 850-444-4 1 SHOT PER DAY SQ
     Route: 058
     Dates: start: 20060225, end: 20060318
  3. NEUPOGEN [Suspect]
     Indication: CHEMOTHERAPY
     Dosage: ?- GET DR. HERRERA. 850-444-4 1 SHOT PER DAY SQ
     Route: 058
     Dates: start: 20060302, end: 20060302
  4. NEUPOGEN [Suspect]
     Indication: WHITE BLOOD CELL COUNT DECREASED
     Dosage: ?- GET DR. HERRERA. 850-444-4 1 SHOT PER DAY SQ
     Route: 058
     Dates: start: 20060302, end: 20060302

REACTIONS (12)
  - ANAPHYLACTIC REACTION [None]
  - BLOOD PRESSURE IMMEASURABLE [None]
  - CONVULSION [None]
  - DRUG HYPERSENSITIVITY [None]
  - DYSPNOEA [None]
  - INJECTION SITE URTICARIA [None]
  - LOSS OF CONSCIOUSNESS [None]
  - PULSE ABSENT [None]
  - RESPIRATION ABNORMAL [None]
  - SINUS DISORDER [None]
  - THROAT TIGHTNESS [None]
  - URTICARIA [None]
